FAERS Safety Report 7958397-1 (Version None)
Quarter: 2011Q4

REPORT INFORMATION
  Report Type: 
  Country: None (occurrence: None)
  Receive Date: 20111205
  Receipt Date: 20111128
  Transmission Date: 20120403
  Serious: Yes (Hospitalization)
  Sender: FDA-Public Use
  Company Number: JP-MERCK-1111USA00589

PATIENT
  Age: 8 Year
  Sex: Female
  Weight: 24 kg

DRUGS (6)
  1. FLOMOX [Concomitant]
     Route: 048
  2. SINGULAIR [Suspect]
     Indication: ASTHMA
     Route: 048
     Dates: start: 20100727, end: 20110316
  3. RAPIACTA [Suspect]
     Indication: INFLUENZA
     Route: 041
     Dates: start: 20110311, end: 20110311
  4. MUCODYNE [Concomitant]
     Route: 048
  5. INAVIR [Suspect]
     Indication: INFLUENZA
     Route: 055
     Dates: start: 20110309, end: 20110309
  6. MUCOSIL-10 [Concomitant]
     Route: 048

REACTIONS (2)
  - SLEEP TERROR [None]
  - DELIRIUM [None]
